FAERS Safety Report 4430064-0 (Version None)
Quarter: 2004Q3

REPORT INFORMATION
  Report Type: 
  Country: None (occurrence: None)
  Receive Date: 20040820
  Receipt Date: 20040421
  Transmission Date: 20050211
  Serious: Yes (Other)
  Sender: FDA-Public Use
  Company Number: DE-ROCHE-365096

PATIENT
  Age: 55 Year
  Sex: Male
  Weight: 78.6 kg

DRUGS (3)
  1. XELODA [Suspect]
     Route: 048
     Dates: start: 20030615, end: 20031015
  2. OXALIPLATIN [Suspect]
     Route: 042
     Dates: start: 20030615, end: 20031015
  3. MAYO ENEMA [Concomitant]

REACTIONS (2)
  - EYE DISORDER [None]
  - VISUAL DISTURBANCE [None]
